FAERS Safety Report 5945856-6 (Version None)
Quarter: 2008Q4

REPORT INFORMATION
  Report Type: 
  Country: None (occurrence: None)
  Receive Date: 20081110
  Receipt Date: 20081030
  Transmission Date: 20090506
  Serious: Yes (Death, Hospitalization)
  Sender: FDA-Public Use
  Company Number: RO-ELI_LILLY_AND_COMPANY-RO200811000706

PATIENT
  Sex: Male
  Weight: 102 kg

DRUGS (6)
  1. HUMULIN 70/30 [Suspect]
     Indication: TYPE 2 DIABETES MELLITUS
     Dosage: 14 IU, EACH MORNING
     Route: 065
     Dates: start: 20080207
  2. HUMULIN 70/30 [Suspect]
     Dosage: 10 IU, EACH EVENING
     Route: 065
     Dates: start: 20080207
  3. FOSINOPRIL SODIUM [Concomitant]
     Indication: HYPERTENSION
     Dosage: 10 MG, DAILY (1/D)
     Route: 065
     Dates: start: 20030101
  4. SPIRONOLACTONUM [Concomitant]
     Indication: HYPERTENSION
     Dosage: 100 MG, UNKNOWN
     Route: 065
     Dates: start: 20030101
  5. FURSEMID [Concomitant]
     Indication: HYPERTENSION
     Dosage: 20 MG, UNKNOWN
     Route: 065
     Dates: start: 20030101
  6. FENOFIBRATE [Concomitant]
     Indication: HYPERLIPIDAEMIA
     Dosage: 160 MG, UNKNOWN
     Route: 065
     Dates: start: 20080319

REACTIONS (3)
  - CARDIAC ARREST [None]
  - LUNG CARCINOMA CELL TYPE UNSPECIFIED STAGE IV [None]
  - METASTASES TO ADRENALS [None]
